FAERS Safety Report 7080257-1 (Version None)
Quarter: 2010Q4

REPORT INFORMATION
  Report Type: 
  Country: None (occurrence: None)
  Receive Date: 20101103
  Receipt Date: 20101027
  Transmission Date: 20110411
  Serious: No
  Sender: FDA-Public Use
  Company Number: US-BIOGENIDEC-2010BI037274

PATIENT
  Sex: Male

DRUGS (1)
  1. AVONEX [Suspect]
     Indication: MULTIPLE SCLEROSIS
     Route: 030
     Dates: start: 20100101

REACTIONS (5)
  - ASTHENIA [None]
  - DEPRESSED MOOD [None]
  - HYPOAESTHESIA [None]
  - PHARYNGITIS STREPTOCOCCAL [None]
  - WEIGHT DECREASED [None]
